FAERS Safety Report 25736844 (Version 1)
Quarter: 2025Q3

REPORT INFORMATION
  Report Type: Spontaneous
  Country: US (occurrence: US)
  Receive Date: 20250828
  Receipt Date: 20250828
  Transmission Date: 20251020
  Serious: No
  Sender: MERZ
  Company Number: US-MRZWEB-2025080000012

PATIENT

DRUGS (1)
  1. XEOMIN [Suspect]
     Active Substance: INCOBOTULINUMTOXINA
     Indication: Torticollis

REACTIONS (1)
  - Off label use [Unknown]
